FAERS Safety Report 6729106-9 (Version None)
Quarter: 2010Q2

REPORT INFORMATION
  Report Type: 
  Country: None (occurrence: None)
  Receive Date: 20100517
  Receipt Date: 20100319
  Transmission Date: 20101027
  Serious: No
  Sender: FDA-Public Use
  Company Number: US-ABBOTT-10P-163-0634562-00

PATIENT
  Age: 27 Year
  Sex: Male
  Weight: 97.61 kg

DRUGS (3)
  1. SIMCOR [Suspect]
     Indication: BLOOD CHOLESTEROL INCREASED
     Dates: start: 20100201
  2. OMEPRAZOLE [Concomitant]
     Indication: GASTROOESOPHAGEAL REFLUX DISEASE
  3. SINGULAIR [Concomitant]
     Indication: SEASONAL ALLERGY

REACTIONS (1)
  - NEPHROLITHIASIS [None]
